FAERS Safety Report 23803619 (Version 2)
Quarter: 2024Q2

REPORT INFORMATION
  Report Type: Spontaneous
  Country: US (occurrence: US)
  Receive Date: 20240501
  Receipt Date: 20240611
  Transmission Date: 20240716
  Serious: No
  Sender: FDA-Public Use
  Company Number: US-PFIZER INC-PV202400055804

PATIENT
  Age: 29 Year
  Sex: Female
  Weight: 58.957 kg

DRUGS (1)
  1. CIBINQO [Suspect]
     Active Substance: ABROCITINIB
     Indication: Dermatitis atopic
     Dosage: 200 MG, 1X/DAY
     Route: 048
     Dates: start: 20230904

REACTIONS (4)
  - Drug ineffective [Recovered/Resolved]
  - Acne [Recovered/Resolved]
  - Impetigo [Recovered/Resolved]
  - Stomatitis [Not Recovered/Not Resolved]
